FAERS Safety Report 7325059-3 (Version None)
Quarter: 2011Q1

REPORT INFORMATION
  Report Type: 
  Country: None (occurrence: None)
  Receive Date: 20110302
  Receipt Date: 20110223
  Transmission Date: 20110831
  Serious: Yes (Other)
  Sender: FDA-Public Use
  Company Number: US-ASTRAZENECA-2007UW02126

PATIENT
  Age: 486 Month
  Sex: Female
  Weight: 106.1 kg

DRUGS (56)
  1. SEROQUEL [Suspect]
     Indication: AFFECTIVE DISORDER
     Route: 048
     Dates: start: 19990701
  2. SEROQUEL [Suspect]
     Dosage: 350 MG AT MORNING AND 350 MG AT NIGHT
     Route: 048
     Dates: start: 20011129
  3. SEROQUEL [Suspect]
     Dosage: 350 MG AT MORNING AND 350 MG AT NIGHT
     Route: 048
     Dates: start: 20011129
  4. SEROQUEL [Suspect]
     Route: 048
     Dates: start: 20070608
  5. SEROQUEL [Suspect]
     Dosage: 300 MG AT MORNING AND 600 MG AT NIGHT
     Route: 048
     Dates: start: 20070702
  6. ZOLOFT [Concomitant]
     Dosage: 100 - 200 MG
     Dates: start: 19980929
  7. ZOLOFT [Concomitant]
     Dosage: 50 MG 5 TABS DAILY
     Dates: start: 19990720
  8. ATROVENT [Concomitant]
     Dates: start: 20011128
  9. SEROQUEL [Suspect]
     Dosage: 300 MG THREE TABLETS DAILY PER PSYCHIATRIST
     Route: 048
     Dates: start: 19990720
  10. SEROQUEL [Suspect]
     Dosage: 200 MG AT MORNING AND 775 MG AT NIGHT
     Route: 048
     Dates: start: 20061022
  11. SEROQUEL [Suspect]
     Route: 048
     Dates: start: 20070608
  12. SEROQUEL [Suspect]
     Dosage: 200 MG AT MORNING AND 600 MG AT NIGHT
     Route: 048
     Dates: start: 20070615
  13. SEROQUEL [Suspect]
     Indication: PARANOIA
     Route: 048
     Dates: start: 19990701
  14. SEROQUEL [Suspect]
     Indication: PSYCHOTIC DISORDER
     Route: 048
     Dates: start: 19990701
  15. SEROQUEL [Suspect]
     Dosage: 100 MG AT MORNING AND 200 MG AT NIGHT
     Route: 048
     Dates: start: 20001006
  16. SEROQUEL [Suspect]
     Dosage: 50 MG AT MORNING AND 350 MG AT NIGHT
     Route: 048
     Dates: start: 20001107
  17. SEROQUEL [Suspect]
     Dosage: 150 MG AT MORNING AND 950 MG AT NIGHT
     Route: 048
     Dates: start: 20070414
  18. SEROQUEL [Suspect]
     Dosage: 200 MG AT MORNING AND 600 MG AT NIGHT
     Route: 048
     Dates: start: 20070615
  19. SEROQUEL [Suspect]
     Dosage: 200 MG AT MORNING AND 600 MG AT NIGHT
     Route: 048
     Dates: start: 20070615
  20. SEROQUEL [Suspect]
     Dosage: 300 MG AT MORNING AND 600 MG AT NIGHT
     Route: 048
     Dates: start: 20070702
  21. SEROQUEL [Suspect]
     Dosage: 100 MG AT MORNING AND 200 MG AT NIGHT
     Route: 048
     Dates: start: 20001006
  22. SEROQUEL [Suspect]
     Dosage: 200 MG AT MORNING AND 775 MG AT NIGHT
     Route: 048
     Dates: start: 20061022
  23. SEROQUEL [Suspect]
     Dosage: 200 MG AT MORNING AND 400 MG AT NIGHT
     Route: 048
     Dates: start: 20070521
  24. SEROQUEL [Suspect]
     Dosage: 200 MG AT MORNING AND 400 MG AT NIGHT
     Route: 048
     Dates: start: 20070521
  25. SEROQUEL [Suspect]
     Route: 048
     Dates: start: 20070608
  26. SEROQUEL [Suspect]
     Route: 048
     Dates: start: 20070608
  27. SEROQUEL [Suspect]
     Dosage: 200 MG AT MORNING AND 600 MG AT NIGHT
     Route: 048
     Dates: start: 20070615
  28. SEROQUEL [Suspect]
     Dosage: 300 MG AT MORNING AND 600 MG AT NIGHT
     Route: 048
     Dates: start: 20070702
  29. METHAZOLAMIDE [Concomitant]
     Indication: BENIGN INTRACRANIAL HYPERTENSION
     Dates: start: 20050721
  30. SEROQUEL [Suspect]
     Dosage: 100 MG AT MORNING AND 200 MG AT NIGHT
     Route: 048
     Dates: start: 20001006
  31. SEROQUEL [Suspect]
     Dosage: 50 MG AT MORNING AND 350 MG AT NIGHT
     Route: 048
     Dates: start: 20001107
  32. SEROQUEL [Suspect]
     Dosage: 50 MG AT MORNING AND 350 MG AT NIGHT
     Route: 048
     Dates: start: 20001107
  33. SEROQUEL [Suspect]
     Dosage: 350 MG AT MORNING AND 350 MG AT NIGHT
     Route: 048
     Dates: start: 20011129
  34. SEROQUEL [Suspect]
     Dosage: 200 MG AT MORNING AND 775 MG AT NIGHT
     Route: 048
     Dates: start: 20061022
  35. SEROQUEL [Suspect]
     Dosage: 150 MG AT MORNING AND 950 MG AT NIGHT
     Route: 048
     Dates: start: 20070414
  36. SEROQUEL [Suspect]
     Dosage: 200 MG AT MORNING AND 400 MG AT NIGHT
     Route: 048
     Dates: start: 20070521
  37. PROLIXIN [Concomitant]
     Dosage: 10-20 MG
     Dates: start: 19980101
  38. TOPAMAX [Concomitant]
  39. SINGULAIR [Concomitant]
     Indication: ASTHMA
     Dates: start: 20011207
  40. SEROQUEL [Suspect]
     Dosage: 350 MG AT MORNING AND 350 MG AT NIGHT
     Route: 048
     Dates: start: 20011129
  41. SEROQUEL [Suspect]
     Dosage: 150 MG AT MORNING AND 950 MG AT NIGHT
     Route: 048
     Dates: start: 20070414
  42. SEROQUEL [Suspect]
     Dosage: 300 MG AT MORNING AND 600 MG AT NIGHT
     Route: 048
     Dates: start: 20070702
  43. GLUCOPHAGE [Concomitant]
     Indication: TYPE 2 DIABETES MELLITUS
     Dates: start: 20010502
  44. SEROQUEL [Suspect]
     Indication: SCHIZOPHRENIA
     Route: 048
     Dates: start: 19990701
  45. SEROQUEL [Suspect]
     Dosage: 300 MG THREE TABLETS DAILY PER PSYCHIATRIST
     Route: 048
     Dates: start: 19990720
  46. SEROQUEL [Suspect]
     Dosage: 100 MG AT MORNING AND 200 MG AT NIGHT
     Route: 048
     Dates: start: 20001006
  47. SEROQUEL [Suspect]
     Dosage: 50 MG AT MORNING AND 350 MG AT NIGHT
     Route: 048
     Dates: start: 20001107
  48. SEROQUEL [Suspect]
     Dosage: 200 MG AT MORNING AND 775 MG AT NIGHT
     Route: 048
     Dates: start: 20061022
  49. SEROQUEL [Suspect]
     Dosage: 150 MG AT MORNING AND 950 MG AT NIGHT
     Route: 048
     Dates: start: 20070414
  50. SEROQUEL [Suspect]
     Dosage: 200 MG AT MORNING AND 400 MG AT NIGHT
     Route: 048
     Dates: start: 20070521
  51. HALDOL [Concomitant]
     Dates: start: 20000101
  52. SEROQUEL [Suspect]
     Dosage: 300 MG THREE TABLETS DAILY PER PSYCHIATRIST
     Route: 048
     Dates: start: 19990720
  53. SEROQUEL [Suspect]
     Dosage: 300 MG THREE TABLETS DAILY PER PSYCHIATRIST
     Route: 048
     Dates: start: 19990720
  54. RISPERDAL [Concomitant]
  55. FLOVENT [Concomitant]
     Dosage: 4 PUFFS TWO TIMES A DAY
     Dates: start: 20011207
  56. ADVAIR DISKUS 100/50 [Concomitant]
     Dosage: 500 / 50
     Dates: start: 20051011

REACTIONS (16)
  - BREAST MASS [None]
  - TYPE 2 DIABETES MELLITUS [None]
  - DYSLIPIDAEMIA [None]
  - OSTEOARTHRITIS [None]
  - TACHYCARDIA [None]
  - BLOOD CHOLESTEROL INCREASED [None]
  - PAIN IN EXTREMITY [None]
  - HYPOAESTHESIA [None]
  - MUSCULOSKELETAL PAIN [None]
  - BENIGN INTRACRANIAL HYPERTENSION [None]
  - WEIGHT INCREASED [None]
  - PAPILLOEDEMA [None]
  - EPISTAXIS [None]
  - DERMAL CYST [None]
  - RETINOPATHY [None]
  - CYST [None]
